FAERS Safety Report 19005210 (Version 1)
Quarter: 2021Q1

REPORT INFORMATION
  Report Type: Spontaneous
  Country: US (occurrence: US)
  Receive Date: 20210312
  Receipt Date: 20210312
  Transmission Date: 20210420
  Serious: Yes (Other)
  Sender: FDA-Public Use
  Company Number: US-009507513-2103USA002778

PATIENT
  Sex: Male

DRUGS (4)
  1. KEYTRUDA [Suspect]
     Active Substance: PEMBROLIZUMAB
     Dosage: UNK UNK, ONCE
     Dates: start: 20210212, end: 20210212
  2. CX?024414. [Suspect]
     Active Substance: CX-024414
     Dosage: UNK
     Route: 030
     Dates: start: 20210228
  3. LENVATINIB MESYLATE [Suspect]
     Active Substance: LENVATINIB MESYLATE
     Dosage: 20 MILLIGRAM, ONCE A DAY
     Route: 048
     Dates: start: 20210210, end: 20210223
  4. CX?024414. [Suspect]
     Active Substance: CX-024414
     Indication: COVID-19 IMMUNISATION
     Dosage: UNK
     Route: 030
     Dates: start: 202101

REACTIONS (6)
  - Vomiting [Recovered/Resolved]
  - Headache [Recovered/Resolved]
  - Tumour pseudoprogression [Unknown]
  - Nausea [Recovered/Resolved]
  - Malignant neoplasm progression [Unknown]
  - Illness [Unknown]

NARRATIVE: CASE EVENT DATE: 20210214
